FAERS Safety Report 10163766 (Version 2)
Quarter: 2014Q2

REPORT INFORMATION
  Report Type: Report from Study
  Country: DE (occurrence: NL)
  Receive Date: 20140509
  Receipt Date: 20140527
  Transmission Date: 20141212
  Serious: Yes (Death)
  Sender: FDA-Public Use
  Company Number: DE-ACTELION-A-US2008-98264

PATIENT
  Age: 70 Year
  Sex: Male

DRUGS (2)
  1. VENTAVIS [Suspect]
     Indication: PRODUCT USED FOR UNKNOWN INDICATION
     Route: 055
  2. ACENOCOUMAROL [Concomitant]

REACTIONS (5)
  - Pulmonary arterial hypertension [Fatal]
  - Haematoma [Unknown]
  - Nasopharyngitis [Unknown]
  - Varicose vein [Unknown]
  - Haemorrhage subcutaneous [Unknown]
